FAERS Safety Report 7298184-3 (Version None)
Quarter: 2011Q1

REPORT INFORMATION
  Report Type: 
  Country: None (occurrence: None)
  Receive Date: 20110217
  Receipt Date: 20110105
  Transmission Date: 20110831
  Serious: No
  Sender: FDA-Public Use
  Company Number: US-JNJFOC-20110101266

PATIENT
  Age: 48 Year
  Sex: Female

DRUGS (1)
  1. NEUTROGENA NORWEGIAN FORMULA HAND CREAM FRANGRANCE FREE [Suspect]
     Indication: DRY SKIN
     Route: 061

REACTIONS (4)
  - SWELLING [None]
  - LIP SWELLING [None]
  - DYSPNOEA [None]
  - PALPITATIONS [None]
